FAERS Safety Report 19983122 (Version 1)
Quarter: 2021Q4

REPORT INFORMATION
  Report Type: Spontaneous
  Country: AT (occurrence: AT)
  Receive Date: 20211021
  Receipt Date: 20211021
  Transmission Date: 20220303
  Serious: Yes (Other)
  Sender: FDA-Public Use
  Company Number: AT-UCBSA-2021031634

PATIENT
  Sex: Male

DRUGS (11)
  1. TOPIRAMATE [Suspect]
     Active Substance: TOPIRAMATE
     Indication: Partial seizures
     Dosage: 200 MILLIGRAM, QD (200 MILLIGRAMS PER DAY)
  2. LEVETIRACETAM [Suspect]
     Active Substance: LEVETIRACETAM
     Indication: Partial seizures
     Dosage: UPTO 3000 MILLIGRAMS PER DAY
  3. LEVETIRACETAM [Suspect]
     Active Substance: LEVETIRACETAM
     Dosage: 3000 MILLIGRAM, QD (3000 MILLIGRAMS PER DAY)
  4. PHENYTOIN [Suspect]
     Active Substance: PHENYTOIN
     Indication: Partial seizures
     Dosage: 750 MILLIGRAM, QD
  5. VIMPAT [Suspect]
     Active Substance: LACOSAMIDE
     Indication: Partial seizures
     Dosage: 400 MILLIGRAM, QD (400 MILLIGRAMS PER DAY)
  6. CLOBAZAM [Suspect]
     Active Substance: CLOBAZAM
     Indication: Partial seizures
     Dosage: 10 MILLIGRAM, QD (10 MILLIGRAMS PER DAY)
  7. NIMUSTINE [Concomitant]
     Active Substance: NIMUSTINE
     Indication: Glioblastoma
     Dosage: UNK
  8. BEVACIZUMAB [Concomitant]
     Active Substance: BEVACIZUMAB
     Indication: Glioblastoma
     Dosage: UNK
  9. VINDESINE [Concomitant]
     Active Substance: VINDESINE
     Indication: Glioblastoma
     Dosage: UNK
  10. TEMOZOLOMIDE [Concomitant]
     Active Substance: TEMOZOLOMIDE
     Indication: Glioblastoma
     Dosage: UNK
  11. CYTARABINE [Concomitant]
     Active Substance: CYTARABINE
     Indication: Glioblastoma
     Dosage: UNK

REACTIONS (2)
  - Multiple-drug resistance [Unknown]
  - Status epilepticus [Recovered/Resolved]
